FAERS Safety Report 15408474 (Version 1)
Quarter: 2018Q3

REPORT INFORMATION
  Report Type: Spontaneous
  Country: CA (occurrence: CA)
  Receive Date: 20180920
  Receipt Date: 20180920
  Transmission Date: 20181010
  Serious: Yes (Other)
  Sender: FDA-Public Use
  Company Number: CA-ASTRAZENECA-2018SF19659

PATIENT
  Sex: Female

DRUGS (1)
  1. ALVESCO [Suspect]
     Active Substance: CICLESONIDE
     Dosage: 200MCG ? 2 INH BID
     Route: 055

REACTIONS (1)
  - Pulmonary fibrosis [Unknown]
